FAERS Safety Report 15744356 (Version 1)
Quarter: 2018Q4

REPORT INFORMATION
  Report Type: Spontaneous
  Country: JP (occurrence: JP)
  Receive Date: 20181220
  Receipt Date: 20181220
  Transmission Date: 20190205
  Serious: Yes (Death, Hospitalization, Other)
  Sender: FDA-Public Use
  Company Number: JP-ROCHE-2194819

PATIENT
  Age: 51 Year
  Sex: Female
  Weight: 69 kg

DRUGS (10)
  1. NOGITECAN HYDROCHLORIDE [Suspect]
     Active Substance: TOPOTECAN HYDROCHLORIDE
     Indication: OVARIAN CANCER
     Route: 041
     Dates: start: 20180718, end: 20180814
  2. PACLITAXEL. [Concomitant]
     Active Substance: PACLITAXEL
     Route: 065
     Dates: start: 20160720, end: 20170301
  3. CARBOPLATIN. [Concomitant]
     Active Substance: CARBOPLATIN
     Indication: OVARIAN CANCER
     Route: 041
     Dates: start: 20170328, end: 20170510
  4. AVASTIN [Suspect]
     Active Substance: BEVACIZUMAB
     Dosage: DATE OF LAST DOSE 14/AUG/2018
     Route: 041
     Dates: start: 20180718
  5. PACLITAXEL. [Concomitant]
     Active Substance: PACLITAXEL
     Indication: OVARIAN CANCER
     Route: 041
     Dates: start: 20170328, end: 20170510
  6. CARBOPLATIN. [Concomitant]
     Active Substance: CARBOPLATIN
     Route: 041
     Dates: start: 20171030, end: 20180615
  7. CARBOPLATIN. [Concomitant]
     Active Substance: CARBOPLATIN
     Route: 065
     Dates: start: 20160720, end: 20170301
  8. GEMCITABINE HYDROCHLORIDE. [Concomitant]
     Active Substance: GEMCITABINE HYDROCHLORIDE
     Indication: OVARIAN CANCER
     Route: 041
     Dates: start: 20171030, end: 20180615
  9. AVASTIN [Suspect]
     Active Substance: BEVACIZUMAB
     Indication: OVARIAN CANCER
     Dosage: DATE OF LAST DOSE 10/MAY/2017
     Route: 041
     Dates: start: 20170328
  10. AVASTIN [Suspect]
     Active Substance: BEVACIZUMAB
     Dosage: DATE OF LAST DOSE 15/JUN/2018
     Route: 041
     Dates: start: 20171030

REACTIONS (6)
  - Ovarian cancer [Fatal]
  - Enterocutaneous fistula [Not Recovered/Not Resolved]
  - Metastases to peritoneum [Not Recovered/Not Resolved]
  - Ureteric obstruction [Recovered/Resolved]
  - Platelet count decreased [Recovering/Resolving]
  - Gastrointestinal perforation [Recovering/Resolving]

NARRATIVE: CASE EVENT DATE: 20170603
